FAERS Safety Report 17044984 (Version 1)
Quarter: 2019Q4

REPORT INFORMATION
  Report Type: Spontaneous
  Country: US (occurrence: US)
  Receive Date: 20191118
  Receipt Date: 20191118
  Transmission Date: 20200122
  Serious: No
  Sender: FDA-Public Use
  Company Number: US-SA-2019SA315928

PATIENT
  Age: 71 Year
  Sex: Female

DRUGS (8)
  1. LISINOPRIL. [Concomitant]
     Active Substance: LISINOPRIL
  2. OMEPRAZOLE. [Concomitant]
     Active Substance: OMEPRAZOLE
  3. VITAMIN B12 [VITAMIN B12 NOS] [Concomitant]
     Active Substance: CYANOCOBALAMIN
  4. ATORVASTATIN [Concomitant]
     Active Substance: ATORVASTATIN
  5. HYDROCHLOROTH [Concomitant]
     Active Substance: HYDROCHLOROTHIAZIDE
  6. CALCIUM [Concomitant]
     Active Substance: CALCIUM
  7. DUPIXENT [Suspect]
     Active Substance: DUPILUMAB
     Indication: DERMATITIS ATOPIC
     Dosage: 300 MG, QOW
     Route: 058
     Dates: start: 20190515
  8. CLOBETASOL [Concomitant]
     Active Substance: CLOBETASOL

REACTIONS (1)
  - Alopecia [Not Recovered/Not Resolved]

NARRATIVE: CASE EVENT DATE: 2019
